FAERS Safety Report 12549608 (Version 3)
Quarter: 2016Q3

REPORT INFORMATION
  Report Type: Spontaneous
  Country: US (occurrence: US)
  Receive Date: 20160712
  Receipt Date: 20160810
  Transmission Date: 20161109
  Serious: No
  Sender: FDA-Public Use
  Company Number: US-PFIZER INC-2016327567

PATIENT
  Age: 65 Year
  Sex: Male
  Weight: 81 kg

DRUGS (10)
  1. KLONOPIN [Concomitant]
     Active Substance: CLONAZEPAM
     Dosage: 1.5 MG, DAILY (IN MORNING DOSE HAS BEEN INCREASED)
  2. BABY ASPIRIN [Concomitant]
     Active Substance: ASPIRIN
     Dosage: UNK
  3. PLAVIX [Concomitant]
     Active Substance: CLOPIDOGREL BISULFATE
     Dosage: 75 MG, DAILY
  4. ACETYLSALICYLIC ACID [Concomitant]
     Active Substance: ASPIRIN
     Dosage: 81 MG, DAILY
  5. PROZAC [Concomitant]
     Active Substance: FLUOXETINE HYDROCHLORIDE
     Dosage: 20 MG, UNK
  6. SUTENT [Suspect]
     Active Substance: SUNITINIB MALATE
     Dosage: 50 MG, CYCLIC, (4 WEEKS ON AND THEN 2 WEEKS OFF) (DAILY)
     Route: 048
     Dates: start: 20160409, end: 20160623
  7. PROSEC [Concomitant]
  8. LEVOTHYROXINE. [Concomitant]
     Active Substance: LEVOTHYROXINE
     Dosage: 125 UG, ONCE A DAY
  9. SUTENT [Suspect]
     Active Substance: SUNITINIB MALATE
     Indication: THYROID CANCER METASTATIC
     Dosage: UNK UNK, CYCLIC
     Dates: start: 20160521, end: 20160617
  10. METOPROLOL. [Concomitant]
     Active Substance: METOPROLOL
     Dosage: 12.5 MG, TWICE A DAY

REACTIONS (16)
  - Lymphocyte count abnormal [Unknown]
  - Decreased appetite [Unknown]
  - Fatigue [Unknown]
  - Feeling jittery [Unknown]
  - Throat irritation [Recovering/Resolving]
  - Local swelling [Unknown]
  - Blood calcitonin increased [Unknown]
  - Neck mass [Unknown]
  - Cytology abnormal [Unknown]
  - Rash [Unknown]
  - Pain in extremity [Unknown]
  - Hypothyroidism [Unknown]
  - Thyroid cancer [Unknown]
  - Diarrhoea [Recovered/Resolved]
  - Disease progression [Unknown]
  - Nausea [Not Recovered/Not Resolved]
